FAERS Safety Report 17558740 (Version 1)
Quarter: 2020Q3

REPORT INFORMATION
  Report Type: Spontaneous
  Country: US (occurrence: US)
  Receive Date: 20200318
  Receipt Date: 20200318
  Transmission Date: 20201104
  Serious: Yes (Other)
  Sender: FDA-Public Use
  Company Number: NVSC2020US054512

PATIENT
  Age: 65 Year
  Sex: Male

DRUGS (3)
  1. BROLUCIZUMAB. [Suspect]
     Active Substance: BROLUCIZUMAB
     Indication: NEOVASCULAR AGE-RELATED MACULAR DEGENERATION
     Dosage: 6 MG, THREE LOADING DOSES THEN Q8?Q12
     Route: 047
     Dates: start: 20200214, end: 20200217
  2. AVASTIN [Suspect]
     Active Substance: BEVACIZUMAB
     Indication: PRODUCT USED FOR UNKNOWN INDICATION
     Dosage: UNK
     Route: 065
  3. LUCENTIS [Suspect]
     Active Substance: RANIBIZUMAB
     Indication: PRODUCT USED FOR UNKNOWN INDICATION
     Dosage: UNK
     Route: 065

REACTIONS (2)
  - Uveitis [Not Recovered/Not Resolved]
  - Vision blurred [Unknown]

NARRATIVE: CASE EVENT DATE: 20200214
